FAERS Safety Report 6112984-4 (Version None)
Quarter: 2009Q1

REPORT INFORMATION
  Report Type: 
  Country: None (occurrence: None)
  Receive Date: 20090312
  Receipt Date: 20090305
  Transmission Date: 20090719
  Serious: Yes (Hospitalization, Congenital Anomaly)
  Sender: FDA-Public Use
  Company Number: A0681265A

PATIENT
  Sex: Male

DRUGS (4)
  1. PAXIL [Suspect]
     Indication: DEPRESSION
  2. PAXIL CR [Suspect]
     Indication: DEPRESSION
  3. PAROXETINE HCL [Suspect]
     Indication: DEPRESSION
  4. VITAMIN TAB [Concomitant]

REACTIONS (3)
  - CLEFT LIP AND PALATE [None]
  - CONGENITAL ANOMALY [None]
  - DRUG EXPOSURE DURING PREGNANCY [None]
